FAERS Safety Report 9846328 (Version 1)
Quarter: 2013Q4

REPORT INFORMATION
  Report Type: Spontaneous
  Country: US (occurrence: None)
  Receive Date: 20131223
  Receipt Date: 20131223
  Transmission Date: 20140711
  Serious: Yes (Other)
  Sender: FDA-Public Use
  Company Number: CABO-13003303

PATIENT
  Age: 61 Year
  Sex: Male

DRUGS (3)
  1. COMETRIQ [Suspect]
     Indication: THYROID CANCER
     Route: 048
     Dates: start: 20130318, end: 201309
  2. LEVOTHYROXINE(LEVOTHYRXINE) [Concomitant]
  3. LOMOTIL(ATROPINE SULFATE, DIPHENOXYLATE, HYDROCHLORIDE) [Concomitant]

REACTIONS (2)
  - Lipase increased [None]
  - Amylase increased [None]
